FAERS Safety Report 10346888 (Version 3)
Quarter: 2014Q3

REPORT INFORMATION
  Report Type: Spontaneous
  Country: US (occurrence: US)
  Receive Date: 20140729
  Receipt Date: 20140917
  Transmission Date: 20150326
  Serious: Yes (Other)
  Sender: FDA-Public Use
  Company Number: PHHY2014US091524

PATIENT
  Age: 60 Year
  Sex: Male

DRUGS (16)
  1. PRIALT [Suspect]
     Active Substance: ZICONOTIDE ACETATE
     Dosage: 2.0600 UG, PER DAY
  2. BACLOFEN INTRATHECAL [Suspect]
     Active Substance: BACLOFEN
     Indication: PAIN
     Dosage: 32.620 UG, PER DAY
     Route: 037
  3. GLUCOSAMINE CHONDROITIN COMPLEX [Suspect]
     Active Substance: CHONDROITIN SULFATE (BOVINE)\GLUCOSAMINE HYDROCHLORIDE
     Dosage: UNK UKN, UNK
  4. TESTOSTERONE. [Suspect]
     Active Substance: TESTOSTERONE
     Dosage: 4 MG/24 HOURS
  5. TRAZODONE HYDROCHLORIDE. [Suspect]
     Active Substance: TRAZODONE HYDROCHLORIDE
     Dosage: UNK UKN, UNK
  6. DILAUDID [Suspect]
     Active Substance: HYDROMORPHONE HYDROCHLORIDE
     Dosage: UNK UKN, UNK
  7. SOMA [Suspect]
     Active Substance: CARISOPRODOL
     Dosage: UNK UKN, UNK
  8. VITAMIN C [Suspect]
     Active Substance: ASCORBIC ACID
     Dosage: UNK UKN, UNK
  9. BEE POLLEN [Suspect]
     Active Substance: BEE POLLEN
     Dosage: UNK UKN, UNK
  10. MULTIVITAMIN [Suspect]
     Active Substance: VITAMINS
     Dosage: UNK UKN, UNK
  11. IBUPROFEN SANDOZ [Suspect]
     Active Substance: IBUPROFEN
     Dosage: UNK UKN, UNK
  12. VITAMIN B COMPLEX [Suspect]
     Active Substance: CYANOCOBALAMIN\DEXPANTHENOL\NIACINAMIDE\PYRIDOXINE HYDROCHLORIDE\RIBOFLAVIN 5^-PHOSPHATE SODIUM\THIAMINE HYDROCHLORIDE\VITAMIN B COMPLEX
     Dosage: UNK UKN, UNK
  13. VITAMIN D [Suspect]
     Active Substance: CHOLECALCIFEROL
     Dosage: UNK UKN, UNK
  14. ZOLOFT [Suspect]
     Active Substance: SERTRALINE HYDROCHLORIDE
     Dosage: UNK UKN, UNK
  15. SIMVASTATIN. [Suspect]
     Active Substance: SIMVASTATIN
     Dosage: UNK
  16. HYDROMORPHONE [Suspect]
     Active Substance: HYDROMORPHONE
     Dosage: 5.494 MG, PER DAY
     Route: 037

REACTIONS (3)
  - Drug withdrawal syndrome [Recovered/Resolved]
  - Feeling abnormal [Recovered/Resolved]
  - Diarrhoea [Recovered/Resolved]

NARRATIVE: CASE EVENT DATE: 20140603
